FAERS Safety Report 24889928 (Version 2)
Quarter: 2025Q1

REPORT INFORMATION
  Report Type: Spontaneous
  Country: CO (occurrence: CO)
  Receive Date: 20250127
  Receipt Date: 20250130
  Transmission Date: 20250408
  Serious: No
  Sender: REGENERON
  Company Number: CO-SA-2025SA023167

PATIENT
  Age: 63 Year
  Sex: Male

DRUGS (1)
  1. PRALUENT [Suspect]
     Active Substance: ALIROCUMAB
     Indication: Type V hyperlipidaemia
     Dosage: 150 MG, QOW
     Route: 058
     Dates: start: 2024

REACTIONS (2)
  - Fatigue [Unknown]
  - Choking sensation [Unknown]

NARRATIVE: CASE EVENT DATE: 20241201
